FAERS Safety Report 9254977 (Version 1)
Quarter: 2013Q2

REPORT INFORMATION
  Report Type: Spontaneous
  Country: CZ (occurrence: CZ)
  Receive Date: 20130425
  Receipt Date: 20130425
  Transmission Date: 20140414
  Serious: Yes (Hospitalization)
  Sender: FDA-Public Use
  Company Number: CZ-PFIZER INC-2013123447

PATIENT
  Age: 48 Year
  Sex: Female

DRUGS (4)
  1. DALACIN [Suspect]
     Indication: CELLULITIS
     Dosage: 600 MG, 3X/DAY
     Route: 051
  2. FRAXIPARINE [Concomitant]
     Indication: PROPHYLAXIS
     Dosage: 0.3 ML, 1X/DAY
     Route: 058
  3. BETAINE/POLYHEXANIDE [Concomitant]
     Indication: ULCER
  4. CHARCOAL, ACTIVATED [Concomitant]
     Indication: ULCER
     Dosage: UNK

REACTIONS (1)
  - Dermatitis allergic [Unknown]
